FAERS Safety Report 8782644 (Version 3)
Quarter: 2012Q4

REPORT INFORMATION
  Report Type: 
  Country: US (occurrence: US)
  Receive Date: 20120913
  Receipt Date: 20121127
  Transmission Date: 20130627
  Serious: Yes (Hospitalization, Other)
  Sender: FDA-Public Use
  Company Number: US-ASTRAZENECA-2012SE60961

PATIENT
  Age: 77 Year
  Sex: Female

DRUGS (3)
  1. NEXIUM [Suspect]
     Route: 048
  2. TOPROL XL [Suspect]
     Route: 048
  3. CRESTOR [Suspect]
     Route: 048

REACTIONS (6)
  - Fall [Unknown]
  - Spinal fracture [Unknown]
  - Hypertension [Unknown]
  - Sinusitis [Unknown]
  - Anxiety [Unknown]
  - Drug dose omission [Unknown]
